FAERS Safety Report 8243311-4 (Version None)
Quarter: 2012Q1

REPORT INFORMATION
  Report Type: 
  Country: None (occurrence: None)
  Receive Date: 20120329
  Receipt Date: 20120315
  Transmission Date: 20120608
  Serious: Yes (Other)
  Sender: FDA-Public Use
  Company Number: AU-ROCHE-1049452

PATIENT
  Sex: Male

DRUGS (4)
  1. CRESTOR [Concomitant]
  2. COLCHICINE [Concomitant]
     Indication: GOUT
  3. ACTEMRA [Suspect]
     Indication: RHEUMATOID ARTHRITIS
     Dates: start: 20110505
  4. PREDNISOLONE [Concomitant]

REACTIONS (2)
  - LIVER FUNCTION TEST ABNORMAL [None]
  - JAUNDICE [None]
